FAERS Safety Report 6662537-4 (Version None)
Quarter: 2010Q1

REPORT INFORMATION
  Report Type: 
  Country: None (occurrence: None)
  Receive Date: 20100329
  Receipt Date: 20100316
  Transmission Date: 20100710
  Serious: Yes (Hospitalization)
  Sender: FDA-Public Use
  Company Number: OMPQ-NO-1003S-0186

PATIENT
  Age: 53 Year
  Sex: Female
  Weight: 52 kg

DRUGS (4)
  1. OMNIPAQUE 350 [Suspect]
     Indication: CALCULUS URINARY
     Dosage: NR, SINGLE DOSE, UNK
     Dates: start: 20050817, end: 20050817
  2. TECHNETIUM (99M TC) SUCCIMER (TECHNESCAN DMSA) [Suspect]
     Dates: start: 20050823, end: 20050823
  3. LEVONOGESTREL AND ESTROGEN (TRIQUILAR) [Concomitant]
  4. NEXIUM [Concomitant]

REACTIONS (2)
  - ABDOMINAL PAIN [None]
  - THROMBOANGIITIS OBLITERANS [None]
